FAERS Safety Report 4608056-8 (Version None)
Quarter: 2005Q1

REPORT INFORMATION
  Report Type: 
  Country: None (occurrence: None)
  Receive Date: 20050314
  Receipt Date: 20020516
  Transmission Date: 20050727
  Serious: Yes (Other)
  Sender: FDA-Public Use
  Company Number: US-MERCK-0205USA02039

PATIENT
  Age: 71 Year
  Sex: Female
  Weight: 72 kg

DRUGS (4)
  1. VIOXX [Suspect]
     Indication: ARTHRALGIA
     Route: 048
     Dates: start: 19991201, end: 20000201
  2. DIOVAN [Concomitant]
     Indication: HYPERTENSION
     Route: 065
  3. PREMARIN [Concomitant]
     Indication: MENOPAUSE
     Route: 065
     Dates: start: 19720101
  4. ASPIRIN [Concomitant]
     Indication: PROPHYLAXIS
     Route: 065

REACTIONS (16)
  - ACROCHORDON [None]
  - ALOPECIA [None]
  - BLOOD PRESSURE INCREASED [None]
  - CYSTOCELE [None]
  - DERMATITIS CONTACT [None]
  - FUNGAL SKIN INFECTION [None]
  - HEADACHE [None]
  - LICHEN PLANUS [None]
  - LUNG NEOPLASM [None]
  - OVARIAN MASS [None]
  - RECTOCELE [None]
  - SEBORRHOEIC DERMATITIS [None]
  - SEBORRHOEIC KERATOSIS [None]
  - SKIN LESION [None]
  - VAGINAL PROLAPSE [None]
  - WRIST DEFORMITY [None]
